FAERS Safety Report 13032240 (Version 1)
Quarter: 2016Q4

REPORT INFORMATION
  Report Type: Report from Study
  Country: US (occurrence: US)
  Receive Date: 20161215
  Receipt Date: 20161215
  Transmission Date: 20170207
  Serious: Yes (Other)
  Sender: FDA-Public Use
  Company Number: US-MALLINCKRODT-T201604278

PATIENT
  Age: 73 Year
  Sex: Male

DRUGS (2)
  1. REPOSITORY CORTICOTROPIN INJECTION [Suspect]
     Active Substance: CORTICOTROPIN
     Indication: RHEUMATOID ARTHRITIS
     Dosage: 80U/1ML 2X/WK
     Route: 030
     Dates: start: 20160314, end: 20160815
  2. NORCO [Suspect]
     Active Substance: ACETAMINOPHEN\HYDROCODONE BITARTRATE
     Indication: PRODUCT USED FOR UNKNOWN INDICATION

REACTIONS (12)
  - Gingival bleeding [Unknown]
  - Poor peripheral circulation [Unknown]
  - Oedema peripheral [Not Recovered/Not Resolved]
  - Mobility decreased [Unknown]
  - Dependence [Unknown]
  - Sensation of foreign body [Not Recovered/Not Resolved]
  - Ageusia [Not Recovered/Not Resolved]
  - Restless legs syndrome [Unknown]
  - Drug withdrawal syndrome [Unknown]
  - Pain in extremity [Unknown]
  - Intervertebral disc disorder [Unknown]
  - Insomnia [Unknown]

NARRATIVE: CASE EVENT DATE: 20160804
